FAERS Safety Report 6182902-1 (Version None)
Quarter: 2009Q2

REPORT INFORMATION
  Report Type: 
  Country: None (occurrence: None)
  Receive Date: 20090507
  Receipt Date: 20090501
  Transmission Date: 20091009
  Serious: Yes (Other)
  Sender: FDA-Public Use
  Company Number: GB-MERCK-0905GBR00010

PATIENT
  Age: 15 Year
  Sex: Male

DRUGS (1)
  1. SINGULAIR [Suspect]
     Indication: ASTHMA
     Route: 048
     Dates: start: 20050915, end: 20081110

REACTIONS (7)
  - ABNORMAL BEHAVIOUR [None]
  - HEAD DISCOMFORT [None]
  - HEADACHE [None]
  - IRRITABILITY [None]
  - PERSONALITY CHANGE [None]
  - SCREAMING [None]
  - SYSTEMIC LUPUS ERYTHEMATOSUS [None]
